FAERS Safety Report 8082999-8 (Version None)
Quarter: 2012Q1

REPORT INFORMATION
  Report Type: 
  Country: None (occurrence: None)
  Receive Date: 20120127
  Receipt Date: 20110308
  Transmission Date: 20120608
  Serious: Yes (Other)
  Sender: FDA-Public Use
  Company Number: US-ABBOTT-11P-163-0710468-00

PATIENT
  Age: 62 Year
  Sex: Male

DRUGS (8)
  1. HYDROXYCHLOROQUIN [Concomitant]
     Indication: PRODUCT USED FOR UNKNOWN INDICATION
     Route: 048
  2. OMEPRAZOLE [Concomitant]
     Indication: GASTROOESOPHAGEAL REFLUX DISEASE
     Dosage: 2 IN 1 DAY BEFORE BREAKFAST
     Route: 048
  3. CHANTIX [Concomitant]
     Indication: EX-TOBACCO USER
     Route: 048
  4. MUCINEX [Concomitant]
     Indication: PARANASAL SINUS HYPERSECRETION
     Route: 048
  5. METHADONE HCL [Concomitant]
     Indication: PRODUCT USED FOR UNKNOWN INDICATION
     Route: 048
  6. PERCOCET [Concomitant]
     Indication: PAIN
     Dosage: 5/325 2 IN 1 DAY
     Route: 048
  7. HUMIRA [Suspect]
     Indication: RHEUMATOID ARTHRITIS
     Route: 058
     Dates: start: 20110222
  8. PREDNISONE TAB [Concomitant]
     Indication: RHEUMATOID ARTHRITIS
     Route: 048

REACTIONS (2)
  - SURGERY [None]
  - THERMAL BURN [None]
